FAERS Safety Report 14966802 (Version 1)
Quarter: 2018Q2

REPORT INFORMATION
  Report Type: Spontaneous
  Country: CA (occurrence: CA)
  Receive Date: 20180604
  Receipt Date: 20180604
  Transmission Date: 20180711
  Serious: No
  Sender: FDA-Public Use
  Company Number: CA-CHEPLA-C20170863

PATIENT
  Age: 56 Year
  Sex: Female

DRUGS (7)
  1. ESTRACE 1 MG [Concomitant]
     Indication: MENOPAUSE
  2. RIVOTRIL [Concomitant]
     Active Substance: CLONAZEPAM
     Indication: INSOMNIA
     Dosage: 0.5 MG PER DAY SOMETIMES FOR INSOMNIA
  3. CIPRALEX [Concomitant]
     Active Substance: ESCITALOPRAM OXALATE
     Indication: ANXIETY
     Dosage: 5 MG AT BEDTIME
  4. NEXIUM [Concomitant]
     Active Substance: ESOMEPRAZOLE MAGNESIUM
     Indication: DYSPEPSIA
  5. XENICAL [Suspect]
     Active Substance: ORLISTAT
     Indication: OVERWEIGHT
     Route: 048
     Dates: start: 201711
  6. VITAMIN D [Concomitant]
     Active Substance: CHOLECALCIFEROL
  7. MIRENA [Concomitant]
     Active Substance: LEVONORGESTREL

REACTIONS (2)
  - Drug ineffective [Not Recovered/Not Resolved]
  - Steatorrhoea [Not Recovered/Not Resolved]
